FAERS Safety Report 21784889 (Version 1)
Quarter: 2022Q4

REPORT INFORMATION
  Report Type: Spontaneous
  Country: CA (occurrence: CA)
  Receive Date: 20221227
  Receipt Date: 20221227
  Transmission Date: 20230113
  Serious: Yes (Other)
  Sender: FDA-Public Use
  Company Number: CA-ORGANON-O2212CAN001822

PATIENT
  Sex: Female

DRUGS (3)
  1. FOLLITROPIN BETA [Suspect]
     Active Substance: FOLLITROPIN BETA
     Indication: Assisted reproductive technology
     Dosage: DOSAGE FORM: NOT SPECIFIED, 150 INTERNATIONAL UNIT
     Route: 065
  2. MENOPUR [Suspect]
     Active Substance: FOLLITROPIN\LUTEINIZING HORMONE
     Indication: Assisted reproductive technology
     Dosage: POWDER FOR SOLUTION SUBCUTANEOUS, 225 INTERNATIONAL UNIT, 1 EVERY 1 DAYS
     Route: 058
  3. MENOPUR [Suspect]
     Active Substance: FOLLITROPIN\LUTEINIZING HORMONE
     Dosage: POWDER FOR SOLUTION SUBCUTANEOUS, 150 MILLIGRAM, 1 EVERY 1 DAYS
     Route: 058

REACTIONS (3)
  - Abortion spontaneous [Unknown]
  - Drug ineffective [Unknown]
  - Drug ineffective [Unknown]
